FAERS Safety Report 4546157-3 (Version None)
Quarter: 2005Q1

REPORT INFORMATION
  Report Type: 
  Country: None (occurrence: None)
  Receive Date: 20050103
  Receipt Date: 20041227
  Transmission Date: 20050727
  Serious: Yes (Life-Threatening)
  Sender: FDA-Public Use
  Company Number: 2004AP06462

PATIENT
  Age: 75 Year
  Sex: Male

DRUGS (3)
  1. ANAPEINE [Suspect]
     Indication: LOCAL ANAESTHESIA
     Dosage: 150 MG DAILY SQ
     Dates: start: 20041227, end: 20041227
  2. SEVOFLURANE [Concomitant]
  3. DIPRIVAN [Concomitant]

REACTIONS (2)
  - SHOCK [None]
  - THERAPY NON-RESPONDER [None]
